FAERS Safety Report 14275947 (Version 1)
Quarter: 2017Q4

REPORT INFORMATION
  Report Type: Spontaneous
  Country: IN (occurrence: IN)
  Receive Date: 20171212
  Receipt Date: 20171212
  Transmission Date: 20180321
  Serious: Yes (Life-Threatening, Other)
  Sender: FDA-Public Use
  Company Number: IN-GLAXOSMITHKLINE-IN2017190620

PATIENT
  Age: 52 Year
  Sex: Male

DRUGS (19)
  1. PROPOFOL. [Concomitant]
     Active Substance: PROPOFOL
     Indication: INDUCTION OF ANAESTHESIA
  2. LIGNOCAINE [Concomitant]
     Active Substance: LIDOCAINE HYDROCHLORIDE
     Indication: INDUCTION OF ANAESTHESIA
     Dosage: UNK
  3. NOREPINEPHRINE. [Concomitant]
     Active Substance: NOREPINEPHRINE
     Dosage: 0.2 MG/KG, UNK
  4. METHYLPREDNISOLONE. [Concomitant]
     Active Substance: METHYLPREDNISOLONE
     Dosage: 1 G, UNK
     Route: 040
  5. PROPOFOL. [Concomitant]
     Active Substance: PROPOFOL
     Indication: BRONCHOSPASM
     Dosage: BOLUS DOSE
  6. SEVOFLURANE. [Concomitant]
     Active Substance: SEVOFLURANE
     Indication: BRONCHOSPASM
     Dosage: INCREASING THE DEPTH OF ANAESTHESIA
  7. FLUTICASONE. [Concomitant]
     Active Substance: FLUTICASONE
     Indication: OBSTRUCTIVE AIRWAYS DISORDER
     Dosage: UNK
     Route: 065
  8. FENTANYL. [Concomitant]
     Active Substance: FENTANYL
     Indication: OBSTRUCTIVE AIRWAYS DISORDER
     Dosage: UNK
  9. ROCURONIUM [Concomitant]
     Active Substance: ROCURONIUM BROMIDE
     Indication: INDUCTION AND MAINTENANCE OF ANAESTHESIA
     Dosage: UNK
  10. ADRENALINE [Concomitant]
     Active Substance: EPINEPHRINE
     Indication: BRONCHOSPASM
     Dosage: BOLUS DOSE
  11. KETAMINE [Concomitant]
     Active Substance: KETAMINE
     Indication: BRONCHOSPASM
     Dosage: BOLUS DOSE
  12. FLUTICASONE + SALMETEROL [Concomitant]
     Active Substance: FLUTICASONE FUROATE\SALMETEROL XINAFOATE
     Dosage: UNK
     Route: 055
  13. MAGNESIUM [Suspect]
     Active Substance: MAGNESIUM
     Indication: BRONCHOSPASM
     Dosage: UNK
     Route: 042
  14. SEVOFLURANE. [Concomitant]
     Active Substance: SEVOFLURANE
     Indication: MAINTENANCE OF ANAESTHESIA
  15. SALBUTAMOL [Suspect]
     Active Substance: ALBUTEROL
     Indication: BRONCHOSPASM
     Dosage: METERED DOSES
     Route: 055
  16. OXYGEN. [Concomitant]
     Active Substance: OXYGEN
     Dosage: UNK
  17. ADRENALINE [Concomitant]
     Active Substance: EPINEPHRINE
     Dosage: 20 UG, UNK
  18. PROSTAGLANDIN E1 [Concomitant]
     Active Substance: ALPROSTADIL
     Dosage: INTRA-ARTERIAL BOLUS
     Route: 013
  19. NOREPINEPHRINE. [Concomitant]
     Active Substance: NOREPINEPHRINE
     Dosage: NEGLIGIBLE DOSE

REACTIONS (1)
  - Drug ineffective [Unknown]
